FAERS Safety Report 14069465 (Version 2)
Quarter: 2019Q1

REPORT INFORMATION
  Report Type: Spontaneous
  Country: PT (occurrence: PT)
  Receive Date: 20171010
  Receipt Date: 20190114
  Transmission Date: 20190417
  Serious: Yes (Hospitalization, Other)
  Sender: FDA-Public Use
  Company Number: PT-GLAXOSMITHKLINE-PT2017GSK152481

PATIENT
  Age: 5 Year
  Sex: Female

DRUGS (4)
  1. ACYCLOVIR. [Suspect]
     Active Substance: ACYCLOVIR
     Indication: VARICELLA
  2. ACYCLOVIR. [Suspect]
     Active Substance: ACYCLOVIR
     Indication: ANTIVIRAL TREATMENT
     Dosage: UNK
     Route: 065
     Dates: start: 201508
  3. HYDROXYZINE [Concomitant]
     Active Substance: HYDROXYZINE HYDROCHLORIDE
     Indication: VARICELLA
     Dosage: UNK
     Route: 065
     Dates: start: 201508
  4. PARACETAMOL [Suspect]
     Active Substance: ACETAMINOPHEN
     Indication: VARICELLA
     Dosage: UNK
     Route: 065
     Dates: start: 201508

REACTIONS (21)
  - Skin fissures [Recovered/Resolved]
  - Neutrophilia [Recovered/Resolved]
  - Conjunctivitis [Unknown]
  - Conjunctival haemorrhage [Recovered/Resolved]
  - Vaginal lesion [Recovered/Resolved]
  - Leukocytosis [Recovered/Resolved]
  - Eyelid oedema [Recovered/Resolved]
  - Decreased appetite [Recovered/Resolved]
  - Restlessness [Recovered/Resolved]
  - Anxiety [Recovered/Resolved]
  - Conjunctival hyperaemia [Unknown]
  - Eye disorder [Recovered/Resolved]
  - Ketonuria [Recovered/Resolved]
  - Stevens-Johnson syndrome [Recovering/Resolving]
  - Mouth ulceration [Recovered/Resolved]
  - Vulvovaginitis [Recovered/Resolved]
  - Condition aggravated [Recovered/Resolved]
  - Vulvovaginal erythema [Recovered/Resolved]
  - Ill-defined disorder [Unknown]
  - Ocular hyperaemia [Recovered/Resolved]
  - Keratitis [Recovered/Resolved]

NARRATIVE: CASE EVENT DATE: 201508
